FAERS Safety Report 7237430-9 (Version None)
Quarter: 2011Q1

REPORT INFORMATION
  Report Type: 
  Country: None (occurrence: None)
  Receive Date: 20110111
  Receipt Date: 20110103
  Transmission Date: 20110831
  Serious: Yes (Other)
  Sender: FDA-Public Use
  Company Number: 792394

PATIENT
  Sex: Female
  Weight: 58 kg

DRUGS (1)
  1. (PAMIDRONIC ACID) [Suspect]
     Indication: PRODUCT USED FOR UNKNOWN INDICATION
     Dates: start: 20101202, end: 20101202

REACTIONS (6)
  - BEDRIDDEN [None]
  - NAUSEA [None]
  - BONE PAIN [None]
  - PAIN IN EXTREMITY [None]
  - SOMNOLENCE [None]
  - DYSPNOEA [None]
